FAERS Safety Report 17811513 (Version 2)
Quarter: 2020Q2

REPORT INFORMATION
  Report Type: Spontaneous
  Country: US (occurrence: US)
  Receive Date: 20200521
  Receipt Date: 20200522
  Transmission Date: 20200714
  Serious: No
  Sender: FDA-Public Use
  Company Number: US-PFIZER INC-2020201157

PATIENT
  Age: 24 Year
  Sex: Female
  Weight: 88.9 kg

DRUGS (1)
  1. CHANTIX [Suspect]
     Active Substance: VARENICLINE TARTRATE
     Indication: SMOKING CESSATION THERAPY
     Dosage: 0.5 MG, 1X/DAY
     Dates: start: 20200519

REACTIONS (3)
  - Vomiting [Unknown]
  - Abdominal discomfort [Recovering/Resolving]
  - Self-induced vomiting [Unknown]

NARRATIVE: CASE EVENT DATE: 20200520
